FAERS Safety Report 22648713 (Version 1)
Quarter: 2023Q2

REPORT INFORMATION
  Report Type: Spontaneous
  Country: GB (occurrence: GB)
  Receive Date: 20230628
  Receipt Date: 20230628
  Transmission Date: 20230722
  Serious: Yes (Congenital Anomaly, Other)
  Sender: FDA-Public Use
  Company Number: None

PATIENT

DRUGS (1)
  1. MIRTAZAPINE [Suspect]
     Active Substance: MIRTAZAPINE
     Indication: Anxiety
     Dosage: 5 MILLIGRAM, QD
     Route: 064
     Dates: start: 20171010

REACTIONS (2)
  - Right aortic arch [Unknown]
  - Foetal exposure during pregnancy [Unknown]
